APPROVED DRUG PRODUCT: POLYETHYLENE GLYCOL 3350
Active Ingredient: POLYETHYLENE GLYCOL 3350
Strength: 17GM/SCOOPFUL
Dosage Form/Route: FOR SOLUTION;ORAL
Application: A209017 | Product #001
Applicant: AUROBINDO PHARMA LTD
Approved: Apr 9, 2018 | RLD: No | RS: No | Type: OTC